FAERS Safety Report 5568895-6 (Version None)
Quarter: 2007Q4

REPORT INFORMATION
  Report Type: 
  Country: None (occurrence: None)
  Receive Date: 20071220
  Receipt Date: 20070306
  Transmission Date: 20080405
  Serious: No
  Sender: FDA-Public Use
  Company Number: A0642086A

PATIENT
  Sex: Male

DRUGS (5)
  1. AVODART [Suspect]
     Indication: BENIGN PROSTATIC HYPERPLASIA
     Dosage: .5MG PER DAY
     Route: 048
  2. FLOMAX [Concomitant]
  3. HYZAAR [Concomitant]
  4. NEXIUM [Concomitant]
  5. LIPITOR [Concomitant]

REACTIONS (6)
  - ABDOMINAL DISTENSION [None]
  - ERECTILE DYSFUNCTION [None]
  - LIBIDO DECREASED [None]
  - PROSTATIC SPECIFIC ANTIGEN INCREASED [None]
  - TESTICULAR PAIN [None]
  - WEIGHT INCREASED [None]
